FAERS Safety Report 10541075 (Version 3)
Quarter: 2015Q2

REPORT INFORMATION
  Report Type: Report from Study
  Country: IT (occurrence: IT)
  Receive Date: 20141024
  Receipt Date: 20150401
  Transmission Date: 20150821
  Serious: Yes (Hospitalization)
  Sender: FDA-Public Use
  Company Number: PHHO2014IT013401

PATIENT
  Age: 56 Year
  Sex: Male
  Weight: 63 kg

DRUGS (3)
  1. LIORESAL [Concomitant]
     Active Substance: BACLOFEN
     Indication: MUSCLE SPASTICITY
     Dosage: 12.5 MG, TID
     Route: 048
     Dates: start: 20140504, end: 20140930
  2. FTY [Suspect]
     Active Substance: FINGOLIMOD HYDROCHLORIDE
     Indication: PRIMARY PROGRESSIVE MULTIPLE SCLEROSIS
     Dosage: 0.5 MG, QD
     Route: 048
     Dates: start: 20140723, end: 20140930
  3. MANTADAN [Concomitant]
     Indication: FATIGUE
     Dosage: 100 MG, BID
     Route: 048
     Dates: start: 20130218, end: 20140930

REACTIONS (1)
  - Peritonitis [Recovered/Resolved]

NARRATIVE: CASE EVENT DATE: 20141001
